FAERS Safety Report 16673144 (Version 1)
Quarter: 2019Q3

REPORT INFORMATION
  Report Type: Spontaneous
  Country: US (occurrence: US)
  Receive Date: 20190805
  Receipt Date: 20190805
  Transmission Date: 20191004
  Serious: Yes (Other)
  Sender: FDA-Public Use
  Company Number: None

PATIENT
  Age: 62 Year
  Sex: Female
  Weight: 62.55 kg

DRUGS (1)
  1. OZEMPIC [Suspect]
     Active Substance: SEMAGLUTIDE
     Indication: DIABETES MELLITUS
     Dosage: ?          OTHER FREQUENCY:1 MG ONCE WEEKLY;?
     Route: 058
     Dates: start: 20190729, end: 20190729

REACTIONS (3)
  - Swollen tongue [None]
  - Dysgeusia [None]
  - Rash pustular [None]

NARRATIVE: CASE EVENT DATE: 20190730
